FAERS Safety Report 5351325-7 (Version None)
Quarter: 2007Q2

REPORT INFORMATION
  Report Type: 
  Country: None (occurrence: None)
  Receive Date: 20070608
  Receipt Date: 20070529
  Transmission Date: 20071010
  Serious: Yes (Other)
  Sender: FDA-Public Use
  Company Number: US-PFIZER INC-2007044615

PATIENT
  Age: 73 Year
  Sex: Male
  Weight: 90.7 kg

DRUGS (2)
  1. LYRICA [Suspect]
     Indication: BACK PAIN
     Dates: start: 20070417, end: 20070526
  2. ANALGESICS [Concomitant]

REACTIONS (2)
  - CONVULSION [None]
  - TREMOR [None]
